FAERS Safety Report 7511473-X (Version None)
Quarter: 2011Q2

REPORT INFORMATION
  Report Type: 
  Country: None (occurrence: None)
  Receive Date: 20110531
  Receipt Date: 20110517
  Transmission Date: 20111010
  Serious: Yes (Other)
  Sender: FDA-Public Use
  Company Number: JP-JNJFOC-20110504576

PATIENT
  Sex: Female
  Weight: 46 kg

DRUGS (2)
  1. ORTHO-NOVUM 1/35-21 [Suspect]
     Indication: DYSMENORRHOEA
     Route: 048
     Dates: start: 20060221, end: 20110101
  2. NEO-MERCAZOLE TAB [Concomitant]
     Indication: HYPERTHYROIDISM
     Route: 048
     Dates: start: 20050601

REACTIONS (3)
  - THERAPEUTIC RESPONSE UNEXPECTED [None]
  - OFF LABEL USE [None]
  - IDIOPATHIC THROMBOCYTOPENIC PURPURA [None]
